FAERS Safety Report 9482061 (Version 1)
Quarter: 2013Q3

REPORT INFORMATION
  Report Type: Report from Study
  Country: DK (occurrence: DK)
  Receive Date: 20130828
  Receipt Date: 20130828
  Transmission Date: 20140515
  Serious: Yes (Hospitalization, Disabling)
  Sender: FDA-Public Use
  Company Number: DK-JNJFOC-20130813094

PATIENT
  Age: 66 Year
  Sex: Male
  Weight: 120 kg

DRUGS (13)
  1. RIVAROXABAN [Suspect]
     Indication: THROMBOSIS PROPHYLAXIS
     Route: 048
     Dates: start: 20120820
  2. RIVAROXABAN [Suspect]
     Indication: DEEP VEIN THROMBOSIS
     Route: 048
     Dates: start: 20120820
  3. ASA [Concomitant]
     Indication: KNEE OPERATION
     Route: 065
     Dates: start: 20130721
  4. ASA [Concomitant]
     Indication: KNEE OPERATION
     Route: 065
     Dates: start: 20090405, end: 20130711
  5. ASA [Concomitant]
     Indication: KNEE OPERATION
     Route: 065
     Dates: start: 20130710, end: 20130710
  6. ATORVASTATIN [Concomitant]
     Indication: PROPHYLAXIS
     Route: 065
     Dates: start: 20090405
  7. ANGICOR [Concomitant]
     Indication: ACUTE CORONARY SYNDROME
     Route: 065
     Dates: start: 20130721
  8. ANGICOR [Concomitant]
     Indication: ACUTE CORONARY SYNDROME
     Route: 065
     Dates: start: 201106, end: 20130719
  9. SPIRIX [Concomitant]
     Indication: HYPERTENSION
     Route: 065
     Dates: start: 20130719
  10. SPIRIX [Concomitant]
     Indication: HYPERTENSION
     Route: 065
     Dates: start: 201206, end: 20130719
  11. NITROGLYCERIN [Concomitant]
     Indication: ACUTE CORONARY SYNDROME
     Dosage: PER 24 HOUR
     Route: 065
     Dates: start: 20090405
  12. TELFAST [Concomitant]
     Route: 065
     Dates: start: 20130415
  13. WARFARIN [Concomitant]
     Indication: ANTICOAGULANT THERAPY
     Route: 065
     Dates: start: 20120819, end: 20120820

REACTIONS (3)
  - Anaemia [Recovered/Resolved]
  - Chest pain [Recovered/Resolved]
  - Chest pain [Recovered/Resolved]
